FAERS Safety Report 7511921-5 (Version None)
Quarter: 2011Q2

REPORT INFORMATION
  Report Type: 
  Country: None (occurrence: None)
  Receive Date: 20110520
  Receipt Date: 20110513
  Transmission Date: 20111010
  Serious: Yes (Hospitalization)
  Sender: FDA-Public Use
  Company Number: WAES 1104FRA00147

PATIENT
  Age: 68 Year
  Sex: Male

DRUGS (7)
  1. MARAVIROC [Suspect]
     Indication: HIV INFECTION
     Dosage: 300 MG/DAILY, PO
     Route: 048
     Dates: start: 20110209
  2. INJ MUPLESTIM [Suspect]
     Indication: PRODUCT USED FOR UNKNOWN INDICATION
     Dosage: 0.53 ML/DAILY, SC
     Route: 058
     Dates: start: 20110405, end: 20110419
  3. ASPIRIN [Concomitant]
  4. RITONAVIR [Concomitant]
  5. ABACAVIR SULFATE/LAMIVUDINE [Concomitant]
  6. DARUNAVIR ETHANOLATE [Concomitant]
  7. TAB RALTEGRAVIR POTASSIUM [Suspect]
     Indication: HIV INFECTION
     Dosage: 400 MG/BID, PO
     Route: 048
     Dates: start: 20110209

REACTIONS (3)
  - INJECTION SITE ERYTHEMA [None]
  - PHLEBITIS [None]
  - SKIN PLAQUE [None]
